FAERS Safety Report 17750789 (Version 1)
Quarter: 2020Q2

REPORT INFORMATION
  Report Type: Spontaneous
  Country: US (occurrence: US)
  Receive Date: 20200506
  Receipt Date: 20200506
  Transmission Date: 20200714
  Serious: No
  Sender: FDA-Public Use
  Company Number: US-VERTEX PHARMACEUTICALS-2020-009853

PATIENT
  Age: 41 Year
  Sex: Female
  Weight: 57 kg

DRUGS (21)
  1. ETODOLAC ER [Concomitant]
     Active Substance: ETODOLAC
  2. IRON [Concomitant]
     Active Substance: IRON
  3. PREDNISONE. [Concomitant]
     Active Substance: PREDNISONE
  4. PREGABALIN. [Concomitant]
     Active Substance: PREGABALIN
  5. CIPROFLOXACIN. [Concomitant]
     Active Substance: CIPROFLOXACIN
  6. ALBUTEROL SULFATE. [Concomitant]
     Active Substance: ALBUTEROL SULFATE
  7. CREON [Concomitant]
     Active Substance: PANCRELIPASE AMYLASE\PANCRELIPASE LIPASE\PANCRELIPASE PROTEASE
  8. PROAIR HFA [Concomitant]
     Active Substance: ALBUTEROL SULFATE
  9. HYDROCHLOROTHIAZIDE. [Concomitant]
     Active Substance: HYDROCHLOROTHIAZIDE
  10. AZITHROMYCIN ANHYDROUS. [Concomitant]
     Active Substance: AZITHROMYCIN ANHYDROUS
  11. CYCLOBENZAPRINE HCL [Concomitant]
     Active Substance: CYCLOBENZAPRINE HYDROCHLORIDE
  12. CLOPIDOGREL [Concomitant]
     Active Substance: CLOPIDOGREL BISULFATE
  13. OMEPRAZOLE. [Concomitant]
     Active Substance: OMEPRAZOLE
  14. TRAMADOL. [Concomitant]
     Active Substance: TRAMADOL
  15. TRIKAFTA [Suspect]
     Active Substance: ELEXACAFTOR\IVACAFTOR\TEZACAFTOR
     Indication: CYSTIC FIBROSIS
     Dosage: 2 TABS (100 MG ELEXACAFTOR/ 50 MG TEZACAFTOR/ 75 MG IVACAFTOR) AM; 1 TAB (150MG IVACAFTOR) PM
     Route: 048
     Dates: start: 20191101
  16. ATROVENT [Concomitant]
     Active Substance: IPRATROPIUM BROMIDE
  17. LEVBID [Concomitant]
     Active Substance: HYOSCYAMINE SULFATE
  18. INCRUSE ELLIPTA [Concomitant]
     Active Substance: UMECLIDINIUM BROMIDE
  19. HYDROCODONE BITARTRATE AND CHLORPHENIRAMINE MALEATE [Concomitant]
     Active Substance: CHLORPHENIRAMINE MALEATE\HYDROCODONE BITARTRATE
  20. METHYLPHENIDATE. [Concomitant]
     Active Substance: METHYLPHENIDATE
  21. CELECOXIB. [Concomitant]
     Active Substance: CELECOXIB

REACTIONS (2)
  - Vitreous floaters [Not Recovered/Not Resolved]
  - Productive cough [Recovered/Resolved]

NARRATIVE: CASE EVENT DATE: 201911
